FAERS Safety Report 16959392 (Version 1)
Quarter: 2019Q4

REPORT INFORMATION
  Report Type: Spontaneous
  Country: US (occurrence: US)
  Receive Date: 20191025
  Receipt Date: 20191025
  Transmission Date: 20200122
  Serious: Yes (Other)
  Sender: FDA-Public Use
  Company Number: US-ADVANZ PHARMA-201910001330

PATIENT

DRUGS (5)
  1. HYDROXYCHLOROQUINE [Suspect]
     Active Substance: HYDROXYCHLOROQUINE
     Dosage: 400 MG, QD
  2. CLOBETASOL [Concomitant]
     Active Substance: CLOBETASOL
     Indication: CUTANEOUS SARCOIDOSIS
     Route: 061
  3. LNFLIXIMAB [Concomitant]
     Dosage: 300 MG, EVERY 6 WEEKS
  4. HYDROXYCHLOROQUINE [Suspect]
     Active Substance: HYDROXYCHLOROQUINE
     Indication: CUTANEOUS SARCOIDOSIS
     Dosage: 200 MG, QD
  5. HYDROXYCHLOROQUINE [Suspect]
     Active Substance: HYDROXYCHLOROQUINE
     Dosage: 200 MG, QOD

REACTIONS (2)
  - Therapy non-responder [Unknown]
  - Condition aggravated [Recovering/Resolving]
